FAERS Safety Report 5569967-2 (Version None)
Quarter: 2007Q4

REPORT INFORMATION
  Report Type: 
  Country: None (occurrence: None)
  Receive Date: 20071217
  Receipt Date: 20071204
  Transmission Date: 20080405
  Serious: Yes (Hospitalization)
  Sender: FDA-Public Use
  Company Number: A-CH2007-18734

PATIENT

DRUGS (1)
  1. TRACLEER [Suspect]
     Indication: DRUG USE FOR UNKNOWN INDICATION
     Dosage: 62.5 MG, BID, ORAL
     Route: 048
     Dates: start: 20071101

REACTIONS (2)
  - EPISTAXIS [None]
  - HAEMOPTYSIS [None]
